FAERS Safety Report 16016976 (Version 8)
Quarter: 2019Q3

REPORT INFORMATION
  Report Type: Spontaneous
  Country: US (occurrence: US)
  Receive Date: 20190228
  Receipt Date: 20190923
  Transmission Date: 20191004
  Serious: Yes (Other)
  Sender: FDA-Public Use
  Company Number: US-PFIZER INC-2019083307

PATIENT
  Age: 76 Year
  Sex: Female
  Weight: 73 kg

DRUGS (20)
  1. LEVOTHYROXINE SODIUM. [Concomitant]
     Active Substance: LEVOTHYROXINE SODIUM
     Indication: HYPOTHYROIDISM
     Dosage: UNK (90 DAYS, 3)
  2. OXYBUTYNIN CHLORIDE. [Concomitant]
     Active Substance: OXYBUTYNIN CHLORIDE
     Indication: HYPERTONIC BLADDER
     Dosage: UNK (90 DAYS, 1)
  3. OMEPRAZOLE. [Concomitant]
     Active Substance: OMEPRAZOLE
     Dosage: 20 MG, 1X/DAY (1 QD 90 DAYS, 3)
     Route: 048
     Dates: end: 20190104
  4. RANITIDINE HCL [Concomitant]
     Active Substance: RANITIDINE HYDROCHLORIDE
     Dosage: 300 MG, UNK (TAKE 1/2 AM, 1/2 PM,/90 DAYS, 1)
  5. LOVASTATIN. [Concomitant]
     Active Substance: LOVASTATIN
     Dosage: 40 MG, UNK (90 DAYS, 1)
     Route: 048
  6. VALACYCLOVIR HCL [Concomitant]
     Active Substance: VALACYCLOVIR HYDROCHLORIDE
     Dosage: 1 G, UNK (UUD 30 DAYS, 2)
     Route: 048
  7. LATANOPROST. [Concomitant]
     Active Substance: LATANOPROST
     Dosage: 1 GTT, UNK (1GTTH 0 DAYS, O)
     Route: 047
  8. GABAPENTIN. [Concomitant]
     Active Substance: GABAPENTIN
     Indication: RADICULOPATHY
     Dosage: 400 MG, UNK (90 DAYS, 1)
     Route: 048
  9. METFORMIN HCL [Concomitant]
     Active Substance: METFORMIN HYDROCHLORIDE
     Dosage: 500 MG, UNK (90 DAYS, 1)
  10. LORATADINE. [Concomitant]
     Active Substance: LORATADINE
     Dosage: 10 MG, 1X/DAY(1 QD 0 DAYS, 0)
     Route: 048
  11. BOSULIF [Suspect]
     Active Substance: BOSUTINIB MONOHYDRATE
     Indication: CHRONIC MYELOID LEUKAEMIA
     Dosage: 400 MG, 1X/DAY
     Route: 048
     Dates: start: 20190204
  12. LIDOCAINE HCL 4% AND MENTHOL 4-4% [Concomitant]
     Dosage: UNK
  13. TRAMADOL HCL [Concomitant]
     Active Substance: TRAMADOL HYDROCHLORIDE
     Indication: PAIN
     Dosage: 50 MG, UNK (UUD 30 DAYS 2)
     Route: 048
  14. MELATONIN [Concomitant]
     Active Substance: MELATONIN
     Dosage: 10 MG, UNK (TS6-8 O DAYS, O)
     Route: 048
  15. BIOTIN [Concomitant]
     Active Substance: BIOTIN
     Dosage: 5000 UG, 1X/DAY (1QD0 DAYS, 0)
  16. TYLENOL EXTRA STRENGTH [Concomitant]
     Active Substance: ACETAMINOPHEN
     Dosage: UNK
  17. BOSULIF [Suspect]
     Active Substance: BOSUTINIB MONOHYDRATE
     Dosage: 400 MG, 1X/DAY
     Route: 048
     Dates: start: 20190204
  18. CO Q 10 [UBIDECARENONE] [Concomitant]
     Dosage: 100 MG, 1X/DAY (1 QD O DAYS, 0)
     Route: 048
  19. CENTRUM SILVER WOMEN 50+ [Concomitant]
     Active Substance: MINERALS\VITAMINS
     Dosage: UNK, 1X/DAY
  20. LOSARTAN POTASSIUM. [Concomitant]
     Active Substance: LOSARTAN POTASSIUM
     Dosage: 50 MG, UNK (90 DAYS, 1)

REACTIONS (16)
  - Back pain [Not Recovered/Not Resolved]
  - Stomatitis [Recovering/Resolving]
  - Neuropathy peripheral [Unknown]
  - Glossitis [Recovered/Resolved]
  - Cerebral disorder [Unknown]
  - Fall [Unknown]
  - Tongue erythema [Recovered/Resolved]
  - Speech disorder [Unknown]
  - Hypoaesthesia [Recovering/Resolving]
  - Swollen tongue [Recovered/Resolved]
  - Contusion [Unknown]
  - Blood potassium increased [Unknown]
  - Thinking abnormal [Unknown]
  - Memory impairment [Unknown]
  - Cognitive disorder [Unknown]
  - Fatigue [Recovering/Resolving]

NARRATIVE: CASE EVENT DATE: 201902
